FAERS Safety Report 5223167-4 (Version None)
Quarter: 2007Q1

REPORT INFORMATION
  Report Type: 
  Country: None (occurrence: None)
  Receive Date: 20070125
  Receipt Date: 20070119
  Transmission Date: 20070707
  Serious: No
  Sender: FDA-Public Use
  Company Number: E2020-00889-SPO-JP

PATIENT
  Age: 82 Year
  Sex: Male

DRUGS (1)
  1. ARICEPT [Suspect]
     Indication: DRUG USE FOR UNKNOWN INDICATION
     Dosage: ORAL
     Route: 048
     Dates: start: 20061201, end: 20070101

REACTIONS (1)
  - PLEURAL EFFUSION [None]
